FAERS Safety Report 19656585 (Version 5)
Quarter: 2022Q3

REPORT INFORMATION
  Report Type: Spontaneous
  Country: US (occurrence: US)
  Receive Date: 20210804
  Receipt Date: 20220913
  Transmission Date: 20221027
  Serious: No
  Sender: FDA-Public Use
  Company Number: US-VERTEX PHARMACEUTICALS-2021-008523

PATIENT
  Sex: Female
  Weight: 92 kg

DRUGS (13)
  1. TRIKAFTA [Suspect]
     Active Substance: ELEXACAFTOR\IVACAFTOR\TEZACAFTOR
     Indication: Cystic fibrosis
     Dosage: 2 TABS IN AM AND 1 TAB IN PM
     Route: 048
     Dates: start: 20210128, end: 2021
  2. TRIKAFTA [Suspect]
     Active Substance: ELEXACAFTOR\IVACAFTOR\TEZACAFTOR
     Dosage: 2 TABS IN AM/ NO PM DOSE
     Route: 048
     Dates: start: 2021
  3. AMLODIPINE [Concomitant]
     Active Substance: AMLODIPINE BESYLATE
  4. ZYRTEC [Concomitant]
     Active Substance: CETIRIZINE HYDROCHLORIDE
  5. HYDROCHLOROTHIAZIDE [Concomitant]
     Active Substance: HYDROCHLOROTHIAZIDE
  6. CALCIUM [Concomitant]
     Active Substance: CALCIUM
  7. MAGNESIUM [Concomitant]
     Active Substance: MAGNESIUM
  8. CALCIUM\MAGNESIUM [Concomitant]
     Active Substance: CALCIUM\MAGNESIUM
  9. ECHINACEA HERB EXTRACT [Concomitant]
  10. ZINC [Concomitant]
     Active Substance: ZINC
  11. OMEPRAZOLE [Concomitant]
     Active Substance: OMEPRAZOLE
  12. LOSARTAN [Concomitant]
     Active Substance: LOSARTAN
  13. AMLODIPINE BESYLATE [Concomitant]
     Active Substance: AMLODIPINE BESYLATE

REACTIONS (26)
  - Purpura [Unknown]
  - Myalgia [Unknown]
  - Dry mouth [Not Recovered/Not Resolved]
  - Blood pressure increased [Unknown]
  - Rash [Unknown]
  - Oedema [Not Recovered/Not Resolved]
  - Insomnia [Not Recovered/Not Resolved]
  - Rales [Not Recovered/Not Resolved]
  - Tongue dry [Unknown]
  - Upper-airway cough syndrome [Not Recovered/Not Resolved]
  - Breath sounds abnormal [Not Recovered/Not Resolved]
  - Dehydration [Unknown]
  - Tongue discomfort [Unknown]
  - Burn oral cavity [Not Recovered/Not Resolved]
  - Haemorrhage [Unknown]
  - Blood potassium increased [Unknown]
  - Contusion [Unknown]
  - Cough [Not Recovered/Not Resolved]
  - Muscle spasms [Not Recovered/Not Resolved]
  - Joint swelling [Not Recovered/Not Resolved]
  - Vision blurred [Not Recovered/Not Resolved]
  - Arthralgia [Unknown]
  - Wheezing [Not Recovered/Not Resolved]
  - Pruritus [Unknown]
  - Paraesthesia [Not Recovered/Not Resolved]
  - Acne [Not Recovered/Not Resolved]

NARRATIVE: CASE EVENT DATE: 20210101
